FAERS Safety Report 4479992-0 (Version None)
Quarter: 2004Q4

REPORT INFORMATION
  Report Type: 
  Country: None (occurrence: None)
  Receive Date: 20041020
  Receipt Date: 20041014
  Transmission Date: 20050328
  Serious: Yes (Other)
  Sender: FDA-Public Use
  Company Number: PHBS2004JP13801

PATIENT
  Age: 1 Year

DRUGS (1)
  1. ZADITEN [Suspect]
     Route: 048
     Dates: start: 20040921

REACTIONS (1)
  - CONVULSION [None]
